FAERS Safety Report 6354710-X (Version None)
Quarter: 2009Q3

REPORT INFORMATION
  Report Type: 
  Country: None (occurrence: None)
  Receive Date: 20090914
  Receipt Date: 20090903
  Transmission Date: 20100115
  Serious: Yes (Other)
  Sender: FDA-Public Use
  Company Number: NZ-ELI_LILLY_AND_COMPANY-NZ200908000014

PATIENT
  Sex: Male

DRUGS (2)
  1. HUMALOG [Suspect]
     Indication: DIABETES MELLITUS
     Dosage: 16 IU, UNK
     Route: 058
  2. HUMALOG MIX 75/25 [Suspect]
     Indication: DIABETES MELLITUS
     Dosage: 24 IU, EACH EVENING
     Route: 058
     Dates: start: 20081105

REACTIONS (2)
  - DRUG DISPENSING ERROR [None]
  - WRONG DRUG ADMINISTERED [None]
